FAERS Safety Report 24424180 (Version 1)
Quarter: 2024Q4

REPORT INFORMATION
  Report Type: Spontaneous
  Country: AT (occurrence: AT)
  Receive Date: 20241010
  Receipt Date: 20241010
  Transmission Date: 20250115
  Serious: Yes (Other)
  Sender: ROCHE
  Company Number: AT-ROCHE-10000098471

PATIENT
  Age: 42 Year
  Sex: Female

DRUGS (1)
  1. TECENTRIQ [Suspect]
     Active Substance: ATEZOLIZUMAB
     Indication: Non-small cell lung cancer
     Route: 065

REACTIONS (7)
  - Addison^s disease [Unknown]
  - Weight decreased [Unknown]
  - Hypotension [Unknown]
  - Decreased appetite [Unknown]
  - Blood corticotrophin increased [Unknown]
  - Fatigue [Unknown]
  - Personality change [Unknown]
